FAERS Safety Report 8806953 (Version 2)
Quarter: 2012Q4

REPORT INFORMATION
  Report Type: 
  Country: PE (occurrence: PE)
  Receive Date: 20120925
  Receipt Date: 20120928
  Transmission Date: 20130627
  Serious: Yes (Death)
  Sender: FDA-Public Use
  Company Number: PE-ASTRAZENECA-2012SE73735

PATIENT
  Age: 92 Year
  Sex: Female

DRUGS (1)
  1. ATACAND PLUS [Suspect]
     Indication: HYPERTENSION
     Dosage: 16/12.5 MG, DAILY
     Route: 048
     Dates: start: 20091012

REACTIONS (1)
  - Death [Fatal]
